FAERS Safety Report 5648945-9 (Version None)
Quarter: 2008Q1

REPORT INFORMATION
  Report Type: 
  Country: None (occurrence: None)
  Receive Date: 20080303
  Receipt Date: 20080303
  Transmission Date: 20080703
  Serious: Yes (Life-Threatening, Hospitalization)
  Sender: FDA-Public Use
  Company Number: None

PATIENT
  Sex: Female
  Weight: 72.5755 kg

DRUGS (2)
  1. ZOLOFT [Suspect]
     Indication: DEPRESSION
     Dosage: 150-200MG.  1/DAY  PO
     Route: 048
     Dates: start: 20050915, end: 20060706
  2. KLONOPIN [Concomitant]

REACTIONS (8)
  - CONDITION AGGRAVATED [None]
  - DEPRESSION [None]
  - DIARRHOEA [None]
  - DISSOCIATION [None]
  - FEELING ABNORMAL [None]
  - HYPERHIDROSIS [None]
  - MARITAL PROBLEM [None]
  - SUICIDE ATTEMPT [None]
